FAERS Safety Report 15089376 (Version 2)
Quarter: 2018Q3

REPORT INFORMATION
  Report Type: Spontaneous
  Country: NL (occurrence: NL)
  Receive Date: 20180629
  Receipt Date: 20180804
  Transmission Date: 20181010
  Serious: Yes (Other)
  Sender: FDA-Public Use
  Company Number: NL-AUROBINDO-AUR-APL-2018-033252

PATIENT
  Age: 59 Year
  Sex: Male

DRUGS (1)
  1. PRAVASTATIN TABLET [Suspect]
     Active Substance: PRAVASTATIN
     Indication: HYPERCHOLESTEROLAEMIA
     Dosage: 10 MILLIGRAM, DAILY (1 DF=10?20 MG)
     Route: 065

REACTIONS (3)
  - Adverse event [Unknown]
  - Tendon rupture [Recovered/Resolved]
  - Muscle rupture [Recovered/Resolved]
